FAERS Safety Report 4476042-7 (Version None)
Quarter: 2004Q4

REPORT INFORMATION
  Report Type: 
  Country: None (occurrence: None)
  Receive Date: 20041012
  Receipt Date: 20041001
  Transmission Date: 20050328
  Serious: Yes (Other)
  Sender: FDA-Public Use
  Company Number: US-2004-030943

PATIENT
  Age: 56 Year
  Sex: Female
  Weight: 105.2 kg

DRUGS (12)
  1. BETASERON [Suspect]
     Indication: MULTIPLE SCLEROSIS
     Dosage: 2 MIU, EVERY 2D, SUBCUTANEOUS
     Route: 058
     Dates: start: 20040811, end: 20040826
  2. EFFEXOR XR [Concomitant]
  3. LIPITOR [Concomitant]
  4. HYDROCODONE W/APAP (HYDROCODONE) [Concomitant]
  5. VALIUM [Concomitant]
  6. SYNTHROID [Concomitant]
  7. NEURONTIN [Concomitant]
  8. DITROPAN/SCH/(OXYBUTYNIN HYDROCHLORIDE) [Concomitant]
  9. ESTRATEST [Concomitant]
  10. OXYCODONE/APAP (OXYCODONE) [Concomitant]
  11. MAXALT [Concomitant]
  12. DIAZEPAM [Concomitant]

REACTIONS (9)
  - AGGRESSION [None]
  - ANGER [None]
  - COGNITIVE DISORDER [None]
  - FAMILY STRESS [None]
  - FEELING OF DESPAIR [None]
  - HOSTILITY [None]
  - OBSESSIVE RUMINATION [None]
  - PSYCHIATRIC SYMPTOM [None]
  - SUICIDAL IDEATION [None]
